FAERS Safety Report 14654465 (Version 1)
Quarter: 2018Q1

REPORT INFORMATION
  Report Type: Spontaneous
  Country: US (occurrence: US)
  Receive Date: 20180319
  Receipt Date: 20180319
  Transmission Date: 20180509
  Serious: No
  Sender: FDA-Public Use
  Company Number: US-ASTRAZENECA-2018SE22628

PATIENT
  Age: 66 Year
  Sex: Male
  Weight: 90.7 kg

DRUGS (3)
  1. BYDUREON [Suspect]
     Active Substance: EXENATIDE
     Indication: TYPE 2 DIABETES MELLITUS
     Route: 058
     Dates: start: 2017
  2. METFORMIN [Concomitant]
     Active Substance: METFORMIN HYDROCHLORIDE
     Indication: TYPE 2 DIABETES MELLITUS
     Route: 048
  3. LANTUS [Concomitant]
     Active Substance: INSULIN GLARGINE
     Indication: TYPE 2 DIABETES MELLITUS
     Dosage: 70 UNITS  TWO TIMES A DAY
     Route: 058
     Dates: start: 2017

REACTIONS (7)
  - Glycosylated haemoglobin increased [Unknown]
  - Blood glucose fluctuation [Unknown]
  - Product quality issue [Unknown]
  - Injection site mass [Recovered/Resolved]
  - Injection site abscess [Not Recovered/Not Resolved]
  - Injection site erythema [Recovered/Resolved]
  - Urticaria [Not Recovered/Not Resolved]

NARRATIVE: CASE EVENT DATE: 2017
